FAERS Safety Report 13846654 (Version 1)
Quarter: 2017Q3

REPORT INFORMATION
  Report Type: Spontaneous
  Country: US (occurrence: US)
  Receive Date: 20170808
  Receipt Date: 20170808
  Transmission Date: 20171127
  Serious: No
  Sender: FDA-Public Use
  Company Number: US-SA-2017SA086442

PATIENT
  Age: 74 Year
  Sex: Female
  Weight: 64 kg

DRUGS (1)
  1. XYZAL ALLERGY 24HR [Suspect]
     Active Substance: LEVOCETIRIZINE DIHYDROCHLORIDE
     Indication: MULTIPLE ALLERGIES
     Dosage: ONCE AT NIGHT
     Route: 065
     Dates: start: 20170505, end: 20170506

REACTIONS (11)
  - Headache [Recovered/Resolved]
  - Insomnia [Recovered/Resolved]
  - Eye pruritus [Recovered/Resolved]
  - Nervousness [Unknown]
  - Flushing [Recovered/Resolved]
  - Confusional state [Unknown]
  - Hypersensitivity [Unknown]
  - Agitation [Recovered/Resolved]
  - Psychomotor hyperactivity [Unknown]
  - Feeling abnormal [Recovered/Resolved]
  - Nasal congestion [Recovered/Resolved]

NARRATIVE: CASE EVENT DATE: 20170505
